FAERS Safety Report 9608163 (Version 1)
Quarter: 2013Q4

REPORT INFORMATION
  Report Type: Spontaneous
  Country: SE (occurrence: None)
  Receive Date: 20131007
  Receipt Date: 20131007
  Transmission Date: 20140711
  Serious: Yes (Other)
  Sender: FDA-Public Use
  Company Number: SYM-2013-11197

PATIENT
  Sex: Female

DRUGS (1)
  1. VOXRA [Suspect]
     Indication: DEPRESSION
     Dosage: 300 MG, DAILY

REACTIONS (3)
  - Petit mal epilepsy [None]
  - Depressed level of consciousness [None]
  - Convulsion [None]
